FAERS Safety Report 9127752 (Version 4)
Quarter: 2014Q4

REPORT INFORMATION
  Report Type: Report from Study
  Country: CZ (occurrence: CZ)
  Receive Date: 20130122
  Receipt Date: 20141229
  Transmission Date: 20150529
  Serious: Yes (Life-Threatening, Hospitalization)
  Sender: FDA-Public Use
  Company Number: CZ-TEVA-381943USA

PATIENT
  Age: 75 Year
  Sex: Female

DRUGS (8)
  1. TREANDA [Suspect]
     Active Substance: BENDAMUSTINE HYDROCHLORIDE
     Dosage: 5.6429 MILLIGRAM DAILY; CYCLIC
     Route: 042
     Dates: start: 20110624
  2. HELICID [Concomitant]
     Indication: GASTRIC ULCER
     Dates: start: 20110526, end: 20110728
  3. OFATUMUMAB [Suspect]
     Active Substance: OFATUMUMAB
     Indication: NON-HODGKIN^S LYMPHOMA UNSPECIFIED HISTOLOGY INDOLENT
     Dosage: 35.7143 MILLIGRAM DAILY; CYCLIC
     Route: 042
     Dates: start: 20110526
  4. DICLOFENAC [Concomitant]
     Active Substance: DICLOFENAC
     Indication: BACK PAIN
     Dates: start: 20110802
  5. TREANDA [Suspect]
     Active Substance: BENDAMUSTINE HYDROCHLORIDE
     Indication: NON-HODGKIN^S LYMPHOMA UNSPECIFIED HISTOLOGY INDOLENT
     Dosage: 5.6429 MILLIGRAM DAILY; CYCLIC
     Route: 042
     Dates: start: 20110527
  6. MILURIT [Concomitant]
     Active Substance: ALLOPURINOL
     Indication: PROPHYLAXIS
     Dates: start: 20110527, end: 20110627
  7. TRAMAL [Concomitant]
     Active Substance: TRAMADOL
     Indication: BACK PAIN
     Dates: start: 20110526, end: 20110725
  8. OXAZEPAM. [Concomitant]
     Active Substance: OXAZEPAM
     Indication: INSOMNIA
     Dates: start: 20110727

REACTIONS (2)
  - Pulmonary embolism [Recovered/Resolved]
  - Infusion related reaction [Recovered/Resolved with Sequelae]

NARRATIVE: CASE EVENT DATE: 20110625
